FAERS Safety Report 21883155 (Version 2)
Quarter: 2023Q1

REPORT INFORMATION
  Report Type: Report from Study
  Country: US (occurrence: US)
  Receive Date: 20230119
  Receipt Date: 20230310
  Transmission Date: 20230418
  Serious: No
  Sender: FDA-Public Use
  Company Number: US-ABBVIE-4239431

PATIENT
  Age: 74 Year
  Sex: Female

DRUGS (2)
  1. RINVOQ [Suspect]
     Active Substance: UPADACITINIB
     Indication: Rheumatoid arthritis
     Dosage: FORM STRENGTH: 15 MILLIGRAM
     Route: 048
     Dates: start: 202212
  2. RINVOQ [Suspect]
     Active Substance: UPADACITINIB
     Indication: Rheumatoid arthritis
     Dosage: FORM STRENGTH: 15 MILLIGRAM
     Route: 048
     Dates: start: 202212

REACTIONS (13)
  - Arthropathy [Unknown]
  - Tinea infection [Not Recovered/Not Resolved]
  - Dysuria [Unknown]
  - Feeling abnormal [Unknown]
  - Memory impairment [Unknown]
  - Cystitis [Unknown]
  - Walking aid user [Unknown]
  - Arthritis [Unknown]
  - Mobility decreased [Unknown]
  - Grip strength decreased [Unknown]
  - Loss of personal independence in daily activities [Unknown]
  - Urinary tract infection [Unknown]
  - Erythema [Unknown]

NARRATIVE: CASE EVENT DATE: 20221201
